FAERS Safety Report 4466334-X (Version None)
Quarter: 2004Q4

REPORT INFORMATION
  Report Type: 
  Country: None (occurrence: None)
  Receive Date: 20041005
  Receipt Date: 20040917
  Transmission Date: 20050328
  Serious: Yes (Hospitalization, Other)
  Sender: FDA-Public Use
  Company Number: ZA-GLAXOSMITHKLINE-B0346007A

PATIENT
  Age: 49 Year
  Sex: Male

DRUGS (9)
  1. CEFUROXIME AXETIL [Suspect]
     Indication: CELLULITIS
     Dosage: 500MG TWICE PER DAY
     Route: 048
     Dates: start: 20040915
  2. LAMICTIN [Suspect]
     Indication: EPILEPSY
     Dosage: 200MG TWICE PER DAY
     Route: 048
  3. TEGRETOL [Suspect]
     Indication: EPILEPSY
     Dosage: 400MG TWICE PER DAY
  4. PARACETAMOL [Concomitant]
  5. IBUPROFEN [Concomitant]
  6. CODEINE [Concomitant]
  7. DEXTROPROPOXYPHEN [Concomitant]
  8. PEMOLINE [Concomitant]
  9. LENTOGESIC [Concomitant]
     Indication: PAIN
     Dates: start: 20040213, end: 20040216

REACTIONS (5)
  - DIZZINESS [None]
  - DRUG TOXICITY [None]
  - GAMMA-GLUTAMYLTRANSFERASE INCREASED [None]
  - MUSCULAR WEAKNESS [None]
  - SYNCOPE [None]
